FAERS Safety Report 6848607-6 (Version None)
Quarter: 2010Q3

REPORT INFORMATION
  Report Type: 
  Country: None (occurrence: None)
  Receive Date: 20100716
  Receipt Date: 20100704
  Transmission Date: 20110219
  Serious: Yes (Other)
  Sender: FDA-Public Use
  Company Number: DE-PFIZER INC-2010083958

PATIENT
  Age: 44 Year
  Sex: Male

DRUGS (2)
  1. SILDENAFIL CITRATE [Suspect]
     Dosage: UNK
  2. TADALAFIL [Suspect]
     Dosage: UNK

REACTIONS (3)
  - ACUTE LYMPHOCYTIC LEUKAEMIA [None]
  - BONE MARROW TOXICITY [None]
  - PANCYTOPENIA [None]
